FAERS Safety Report 7418033-X (Version None)
Quarter: 2011Q2

REPORT INFORMATION
  Report Type: 
  Country: None (occurrence: None)
  Receive Date: 20110407
  Receipt Date: 20110323
  Transmission Date: 20111010
  Serious: Yes (Hospitalization)
  Sender: FDA-Public Use
  Company Number: AE 2011-110

PATIENT
  Age: 45 Year
  Sex: Female

DRUGS (1)
  1. CLOZAPINE [Suspect]
     Indication: SCHIZOPHRENIA
     Dosage: 400 MG DAILY PO
     Route: 048

REACTIONS (21)
  - SOCIAL AVOIDANT BEHAVIOUR [None]
  - STARING [None]
  - GRAND MAL CONVULSION [None]
  - ENCEPHALITIS [None]
  - HEADACHE [None]
  - IMMOBILE [None]
  - NUCHAL RIGIDITY [None]
  - ENCEPHALOPATHY [None]
  - SELECTIVE MUTISM [None]
  - DECREASED EYE CONTACT [None]
  - SOMNOLENCE [None]
  - LEUKOCYTOSIS [None]
  - VOMITING [None]
  - URINARY INCONTINENCE [None]
  - REFUSAL OF TREATMENT BY PATIENT [None]
  - PYREXIA [None]
  - PAIN [None]
  - DIET REFUSAL [None]
  - FAECAL INCONTINENCE [None]
  - NEGLECT OF PERSONAL APPEARANCE [None]
  - OTORRHOEA [None]
